FAERS Safety Report 4676174-4 (Version None)
Quarter: 2005Q2

REPORT INFORMATION
  Report Type: 
  Country: None (occurrence: None)
  Receive Date: 20050527
  Receipt Date: 20050411
  Transmission Date: 20051028
  Serious: No
  Sender: FDA-Public Use
  Company Number: US-GLAXOSMITHKLINE-A0553574A

PATIENT
  Sex: Male

DRUGS (2)
  1. WELLBUTRIN XL [Suspect]
     Indication: DEPRESSION
     Dosage: 450MG IN THE MORNING
     Route: 048
     Dates: start: 20050301
  2. VALIUM [Concomitant]

REACTIONS (3)
  - FAECES DISCOLOURED [None]
  - NAUSEA [None]
  - STOMACH DISCOMFORT [None]
